FAERS Safety Report 6695182-5 (Version None)
Quarter: 2010Q2

REPORT INFORMATION
  Report Type: 
  Country: None (occurrence: None)
  Receive Date: 20100423
  Receipt Date: 20100412
  Transmission Date: 20101027
  Serious: Yes (Other)
  Sender: FDA-Public Use
  Company Number: US-WATSON-2010-04855

PATIENT
  Age: 27 Year
  Sex: Male

DRUGS (2)
  1. NICOTINE POLACRILEX MINT COATED (WATSON LABORATORIES) [Suspect]
     Indication: DRUG USE FOR UNKNOWN INDICATION
     Dosage: 5 PIECES, OVER 5 HOURS
     Route: 002
  2. CIGARETTES [Suspect]
     Indication: NICOTINE DEPENDENCE
     Dosage: SMOKED 8 CIGARETTES OVER 5 HOURS
     Route: 055

REACTIONS (9)
  - CONVULSION [None]
  - ERYTHEMA [None]
  - FALL [None]
  - HYPOTENSION [None]
  - INTENTIONAL DRUG MISUSE [None]
  - LOSS OF CONSCIOUSNESS [None]
  - MUSCLE RIGIDITY [None]
  - MUSCULOSKELETAL STIFFNESS [None]
  - OVERDOSE [None]
